FAERS Safety Report 12171694 (Version 1)
Quarter: 2016Q1

REPORT INFORMATION
  Report Type: Spontaneous
  Country: BR (occurrence: BR)
  Receive Date: 20160311
  Receipt Date: 20160311
  Transmission Date: 20160526
  Serious: Yes (Death, Hospitalization)
  Sender: FDA-Public Use
  Company Number: BR-PFIZER INC-2016114920

PATIENT
  Age: 57 Year
  Sex: Female

DRUGS (3)
  1. CARBAMAZEPINE. [Concomitant]
     Active Substance: CARBAMAZEPINE
     Dosage: UNK
  2. CAPTOPRIL. [Concomitant]
     Active Substance: CAPTOPRIL
     Dosage: UNK
  3. SUTENT [Suspect]
     Active Substance: SUNITINIB MALATE
     Indication: METASTATIC RENAL CELL CARCINOMA
     Dosage: 50 MG, TOOK FOR 22 DAYS AND PAUSED FOR 2 WEEKS
     Route: 048
     Dates: start: 201405, end: 201512

REACTIONS (3)
  - Pleural effusion [Fatal]
  - Disease progression [Fatal]
  - Metastatic renal cell carcinoma [Fatal]
